FAERS Safety Report 4774344-8 (Version None)
Quarter: 2005Q3

REPORT INFORMATION
  Report Type: 
  Country: None (occurrence: None)
  Receive Date: 20050921
  Receipt Date: 20050909
  Transmission Date: 20060218
  Serious: Yes (Hospitalization)
  Sender: FDA-Public Use
  Company Number: JP-JNJFOC-20050902172

PATIENT
  Sex: Male
  Weight: 63 kg

DRUGS (9)
  1. REMICADE [Suspect]
     Route: 042
  2. REMICADE [Suspect]
     Route: 042
  3. REMICADE [Suspect]
     Indication: RHEUMATOID ARTHRITIS
     Route: 042
  4. RHEUMATREX [Suspect]
     Route: 048
  5. RHEUMATREX [Suspect]
     Indication: RHEUMATOID ARTHRITIS
     Route: 048
  6. PREDNISOLONE [Concomitant]
     Route: 048
  7. INDOMETHACIN [Concomitant]
     Route: 048
  8. FASTIC [Concomitant]
     Indication: DIABETES MELLITUS
     Route: 048
  9. TAKEPRON [Concomitant]
     Route: 048

REACTIONS (2)
  - BLOOD LACTATE DEHYDROGENASE INCREASED [None]
  - PNEUMOCYSTIS JIROVECI PNEUMONIA [None]
